FAERS Safety Report 8341648-1 (Version None)
Quarter: 2012Q2

REPORT INFORMATION
  Report Type: 
  Country: None (occurrence: None)
  Receive Date: 20120507
  Receipt Date: 20120504
  Transmission Date: 20120825
  Serious: Yes (Other)
  Sender: FDA-Public Use
  Company Number: US-JNJFOC-2007058443

PATIENT
  Sex: Female
  Weight: 59.4 kg

DRUGS (5)
  1. CHANTIX [Suspect]
     Indication: SMOKING CESSATION THERAPY
     Dosage: DAILY DOSE TEXT: EVERYDAY
     Dates: start: 20070521, end: 20070701
  2. NEURONTIN [Concomitant]
  3. BENADRYL [Suspect]
     Indication: PRODUCT USED FOR UNKNOWN INDICATION
  4. ZOLOFT [Concomitant]
  5. BENADRYL [Suspect]

REACTIONS (4)
  - PYREXIA [None]
  - DIZZINESS [None]
  - DRUG INTOLERANCE [None]
  - RESPIRATORY ARREST [None]
